FAERS Safety Report 6677817-6 (Version None)
Quarter: 2010Q2

REPORT INFORMATION
  Report Type: 
  Country: None (occurrence: None)
  Receive Date: 20100412
  Receipt Date: 20100324
  Transmission Date: 20101027
  Serious: No
  Sender: FDA-Public Use
  Company Number: US-ALEXION-A201000349

PATIENT
  Sex: Female

DRUGS (11)
  1. SOLIRIS [Suspect]
     Indication: PAROXYSMAL NOCTURNAL HAEMOGLOBINURIA
     Dosage: 600 MG, QWK
     Route: 042
     Dates: start: 20080201, end: 20080201
  2. SOLIRIS [Suspect]
     Dosage: 900 MG, Q2WK
     Route: 042
     Dates: start: 20080229, end: 20080501
  3. SOLIRIS [Suspect]
     Dosage: 900 MG, Q12DAYS
     Route: 042
     Dates: start: 20080523, end: 20090101
  4. SOLIRIS [Suspect]
     Dosage: 900 MG, Q10DAYS
     Route: 042
     Dates: start: 20091101
  5. PREDNISOLONE [Suspect]
     Indication: ANAEMIA HAEMOLYTIC AUTOIMMUNE
     Dosage: 100 MG, QD
     Dates: start: 20101224
  6. PREDNISOLONE [Suspect]
     Dosage: 5 MG, QD
     Dates: end: 20100128
  7. FOLIC ACID [Concomitant]
     Indication: PAROXYSMAL NOCTURNAL HAEMOGLOBINURIA
     Dosage: 1 MG, QD
     Route: 048
  8. AMBIEN [Concomitant]
     Indication: SLEEP DISORDER
     Dosage: 12.5 MG, QD
     Route: 048
  9. EFFEXOR XR [Concomitant]
     Indication: DEPRESSION
     Dosage: 150 MG, QD
     Route: 048
  10. PLAQUENIL [Concomitant]
     Indication: SJOGREN'S SYNDROME
     Dosage: 200 MG, BID
     Route: 048
  11. SYNTHROID [Concomitant]
     Indication: HYPOTHYROIDISM
     Dosage: 175 UG, QD
     Route: 048

REACTIONS (3)
  - ANAEMIA HAEMOLYTIC AUTOIMMUNE [None]
  - CONDITION AGGRAVATED [None]
  - FLUID RETENTION [None]
